FAERS Safety Report 12358425 (Version 2)
Quarter: 2016Q2

REPORT INFORMATION
  Report Type: Spontaneous
  Country: US (occurrence: US)
  Receive Date: 20160512
  Receipt Date: 20160627
  Transmission Date: 20160815
  Serious: Yes (Other)
  Sender: FDA-Public Use
  Company Number: US-PFIZER INC-2016244398

PATIENT
  Age: 77 Year
  Sex: Female

DRUGS (17)
  1. ATARAX [Concomitant]
     Active Substance: HYDROXYZINE\HYDROXYZINE HYDROCHLORIDE
     Dosage: 25 MG, 1X/DAY
     Route: 048
     Dates: start: 20160328
  2. BENADRYL [Concomitant]
     Active Substance: DIPHENHYDRAMINE HYDROCHLORIDE
     Dosage: 25 MG, AS NEEDED, (EVERY 4 (FOUR) HOURS) (1AM, 1 LUNCH, 1 EVENING + 1 BEDTIME)
     Route: 048
  3. GLUCOPHAGE [Concomitant]
     Active Substance: METFORMIN HYDROCHLORIDE
     Dosage: 500 MG, 2X/DAY, WITH MEALS
     Route: 048
     Dates: start: 20160322
  4. LYRICA [Suspect]
     Active Substance: PREGABALIN
     Dosage: 75 MG, 3X/DAY
     Route: 048
     Dates: start: 20160317
  5. SYNTHROID [Concomitant]
     Active Substance: LEVOTHYROXINE SODIUM
     Dosage: 88 UG, DAILY
     Route: 048
     Dates: start: 20151222
  6. KENALOG [Concomitant]
     Active Substance: TRIAMCINOLONE ACETONIDE
     Dosage: UNK
     Dates: start: 20140312
  7. NORVASC [Concomitant]
     Active Substance: AMLODIPINE BESYLATE
     Dosage: 10 MG, DAILY
     Route: 048
     Dates: start: 20151222
  8. SPECTAZOLE [Concomitant]
     Active Substance: ECONAZOLE NITRATE
     Dosage: UNK
     Dates: start: 20151218
  9. PROTONIX [Concomitant]
     Active Substance: PANTOPRAZOLE SODIUM
     Dosage: 40 MG, 1X/DAY
     Route: 048
     Dates: start: 20160322
  10. LANTUS SOLOSTAR [Concomitant]
     Active Substance: INSULIN GLARGINE
     Dosage: 40 IU, 2X/DAY
     Route: 058
     Dates: start: 20150514
  11. CUTIVATE [Concomitant]
     Active Substance: FLUTICASONE PROPIONATE
     Dosage: UNK
     Dates: start: 20141022
  12. PAXIL [Concomitant]
     Active Substance: PAROXETINE HYDROCHLORIDE
     Dosage: 30 MG, 2X/DAY
     Route: 048
     Dates: start: 20160302
  13. LIORESAL [Concomitant]
     Active Substance: BACLOFEN
     Dosage: 10 MG, 1X/DAY, (AT BEDTIME)
     Route: 048
     Dates: start: 20160322
  14. LASIX [Concomitant]
     Active Substance: FUROSEMIDE
     Dosage: 20 MG, 1X/DAY
     Route: 048
     Dates: start: 20150730
  15. TENORMIN [Concomitant]
     Active Substance: ATENOLOL
     Dosage: 25 MG, 2X/DAY
     Route: 048
     Dates: start: 20160406
  16. MYCOSTATIN [Concomitant]
     Active Substance: NYSTATIN
     Dosage: UNK, 3X/DAY, (AFFECTED AREAS OF SKIN FOLDS)
     Route: 061
     Dates: start: 20150926
  17. MAG DELAY [Concomitant]
     Dosage: 64 MG, 2X/DAY
     Route: 048
     Dates: start: 20160114

REACTIONS (1)
  - Blindness [Unknown]
